FAERS Safety Report 23772454 (Version 1)
Quarter: 2024Q2

REPORT INFORMATION
  Report Type: Spontaneous
  Country: DE (occurrence: DE)
  Receive Date: 20240423
  Receipt Date: 20240423
  Transmission Date: 20240716
  Serious: Yes (Hospitalization, Other)
  Sender: FDA-Public Use
  Company Number: DE-KRKA-DE2023K06069STU

PATIENT
  Age: 85 Year
  Sex: Female
  Weight: 40 kg

DRUGS (8)
  1. DEXAMETHASONE [Suspect]
     Active Substance: DEXAMETHASONE
     Indication: Plasma cell myeloma
     Dosage: 20 MG/DAY CYCLE 1,8,15,22
     Route: 065
     Dates: start: 20230322, end: 20231213
  2. DARATUMUMAB [Suspect]
     Active Substance: DARATUMUMAB
     Dosage: 1800 MG SC (C1+2: 1,8,15,22; C3-6: 1,15; FROM C7: 1)
     Route: 058
     Dates: start: 20230322
  3. DARATUMUMAB [Suspect]
     Active Substance: DARATUMUMAB
     Indication: Plasma cell myeloma
     Dosage: 1800 MG,QD (1800 MG/DAY CYCLE 1, 8, 15, 22)
     Route: 065
  4. LENALIDOMIDE [Suspect]
     Active Substance: LENALIDOMIDE
     Dosage: 10 MG, 10 MG/DAY ON CYCLE DAYS 1-21 OF A 28 DAY CYCLE
     Route: 065
     Dates: start: 20230524
  5. LENALIDOMIDE [Suspect]
     Active Substance: LENALIDOMIDE
     Indication: Plasma cell myeloma
     Dosage: 15 MG,QD (15 MG/DAY CYCLE 1-21 )
     Route: 048
     Dates: start: 20230322, end: 20230523
  6. BISOPROLOL [Concomitant]
     Active Substance: BISOPROLOL\BISOPROLOL FUMARATE
     Indication: Product used for unknown indication
     Dosage: 2.5 MG, PER DAY 1-0-0
     Route: 048
     Dates: start: 201912
  7. EDOXABAN TOSYLATE [Concomitant]
     Active Substance: EDOXABAN TOSYLATE
     Indication: Product used for unknown indication
     Dosage: 30 MG, PER DAY 1-0-0
     Route: 048
     Dates: start: 201912
  8. VALSARTAN [Concomitant]
     Active Substance: VALSARTAN
     Indication: Product used for unknown indication
     Dosage: UNK
     Route: 065

REACTIONS (7)
  - Pancytopenia [Not Recovered/Not Resolved]
  - Atrial fibrillation [Recovered/Resolved]
  - Pancytopenia [Recovered/Resolved]
  - Leukopenia [Recovered/Resolved]
  - Aortic stenosis [Unknown]
  - Dyspnoea [Not Recovered/Not Resolved]
  - Nausea [Recovered/Resolved]

NARRATIVE: CASE EVENT DATE: 20230425
